FAERS Safety Report 15006560 (Version 1)
Quarter: 2018Q2

REPORT INFORMATION
  Report Type: Report from Study
  Country: US (occurrence: US)
  Receive Date: 20180613
  Receipt Date: 20180613
  Transmission Date: 20180711
  Serious: No
  Sender: FDA-Public Use
  Company Number: US-US WORLDMEDS, LLC-USW201708-001256

PATIENT
  Sex: Male

DRUGS (1)
  1. APOKYN [Suspect]
     Active Substance: APOMORPHINE HYDROCHLORIDE
     Indication: PARKINSON^S DISEASE

REACTIONS (8)
  - Pyrexia [Not Recovered/Not Resolved]
  - Nervousness [Not Recovered/Not Resolved]
  - Nasal congestion [Not Recovered/Not Resolved]
  - Fatigue [Recovered/Resolved]
  - Feeling hot [Recovered/Resolved]
  - Blood pressure fluctuation [Recovered/Resolved]
  - Dyspnoea [Not Recovered/Not Resolved]
  - Gait disturbance [Recovered/Resolved]
